FAERS Safety Report 24647447 (Version 1)
Quarter: 2024Q4

REPORT INFORMATION
  Report Type: Spontaneous
  Country: CN (occurrence: CN)
  Receive Date: 20241121
  Receipt Date: 20241121
  Transmission Date: 20250115
  Serious: Yes (Hospitalization)
  Sender: ELI LILLY AND COMPANY
  Company Number: CN-ELI_LILLY_AND_COMPANY-CN202411005646

PATIENT
  Age: 81 Year
  Sex: Male
  Weight: 70 kg

DRUGS (5)
  1. TRULICITY [Suspect]
     Active Substance: DULAGLUTIDE
     Indication: Diabetes mellitus
     Dosage: 1.5 MG, WEEKLY (1/W)
     Route: 058
  2. REPAGLINIDE [Concomitant]
     Active Substance: DULOXETINE HYDROCHLORIDE\REPAGLINIDE\TICAGRELOR
     Indication: Blood glucose increased
     Dosage: 2 MG, TID
     Route: 048
     Dates: start: 20240904, end: 20241016
  3. METFORMIN HYDROCHLORIDE [Concomitant]
     Active Substance: METFORMIN HYDROCHLORIDE
     Indication: Blood glucose increased
     Dosage: 0.5 MG, TID
     Route: 048
     Dates: start: 20240904, end: 20241016
  4. DAPAGLIFLOZIN [Concomitant]
     Active Substance: DAPAGLIFLOZIN
     Indication: Blood glucose increased
     Dosage: 10 MG, UNKNOWN
     Route: 048
     Dates: start: 20240904, end: 20241016
  5. ACARBOSE [Concomitant]
     Active Substance: ACARBOSE
     Indication: Blood glucose increased
     Dosage: 100 MG, UNKNOWN
     Route: 048
     Dates: start: 20240904, end: 20241016

REACTIONS (2)
  - Cholangitis [Recovering/Resolving]
  - Blood glucose increased [Unknown]

NARRATIVE: CASE EVENT DATE: 20241026
